FAERS Safety Report 6692205-4 (Version None)
Quarter: 2010Q2

REPORT INFORMATION
  Report Type: 
  Country: None (occurrence: None)
  Receive Date: 20100422
  Receipt Date: 20091029
  Transmission Date: 20101027
  Serious: No
  Sender: FDA-Public Use
  Company Number: US-ASTRAZENECA-2009SE23517

PATIENT
  Age: 41 Year
  Sex: Female
  Weight: 90.7 kg

DRUGS (2)
  1. METOPROLOL SUCCINATE [Suspect]
     Route: 048
     Dates: start: 20090601
  2. VITAMINS [Concomitant]

REACTIONS (2)
  - COELIAC DISEASE [None]
  - EXPOSURE TO ALLERGEN [None]
